FAERS Safety Report 6713447-5 (Version None)
Quarter: 2010Q2

REPORT INFORMATION
  Report Type: 
  Country: None (occurrence: None)
  Receive Date: 20100503
  Receipt Date: 20100418
  Transmission Date: 20101027
  Serious: Yes (Death, Other)
  Sender: FDA-Public Use
  Company Number: A-US2010-35834

PATIENT
  Age: 23 Year
  Sex: Female
  Weight: 50 kg

DRUGS (5)
  1. TRACLEER [Suspect]
     Indication: PULMONARY ARTERIAL HYPERTENSION
  2. VENTAVIS [Suspect]
     Indication: PULMONARY ARTERIAL HYPERTENSION
     Dosage: 5 UG 7 X DAY, RESPIRATORY
     Route: 055
  3. ILOMEDIN (ILOPROST) INTRAVENOUS INFUSION [Concomitant]
  4. SILDENAFIL CITRATE [Concomitant]
  5. HEPARIN [Concomitant]

REACTIONS (6)
  - CAESAREAN SECTION [None]
  - DISEASE PROGRESSION [None]
  - DRUG EXPOSURE DURING PREGNANCY [None]
  - PREGNANCY [None]
  - PULMONARY HYPERTENSION [None]
  - SYNCOPE [None]
